FAERS Safety Report 5277106-0 (Version None)
Quarter: 2007Q1

REPORT INFORMATION
  Report Type: 
  Country: None (occurrence: None)
  Receive Date: 20070327
  Receipt Date: 20070322
  Transmission Date: 20070707
  Serious: Yes (Hospitalization)
  Sender: FDA-Public Use
  Company Number: FR-GLAXOSMITHKLINE-B0463358A

PATIENT
  Age: 1 Day
  Sex: Male
  Weight: 3.3 kg

DRUGS (8)
  1. ZANTAC [Suspect]
     Indication: NAUSEA
     Dates: start: 20050628, end: 20050815
  2. DEROXAT [Suspect]
     Indication: DEPRESSION
     Dosage: 20MG PER DAY
     Dates: start: 20050628, end: 20050815
  3. STILNOX [Suspect]
     Dates: end: 20050815
  4. ASPEGIC 1000 [Suspect]
     Indication: HEADACHE
     Dosage: 2.5G WEEKLY
     Dates: end: 20050815
  5. PERIDYS [Suspect]
     Indication: NAUSEA
     Dosage: 10MG SIX TIMES PER DAY
     Dates: start: 20050628, end: 20050815
  6. ZOMIG [Suspect]
     Indication: HEADACHE
     Dates: start: 20050524, end: 20050812
  7. VOGALENE [Concomitant]
     Indication: NAUSEA
     Dates: end: 20050815
  8. BETAINE CITRATE [Concomitant]
     Indication: NAUSEA
     Dates: end: 20050815

REACTIONS (2)
  - DRUG EXPOSURE DURING PREGNANCY [None]
  - HYPOSPADIAS [None]
